FAERS Safety Report 8549978-5 (Version None)
Quarter: 2012Q3

REPORT INFORMATION
  Report Type: 
  Country: None (occurrence: None)
  Receive Date: 20120720
  Receipt Date: 20120720
  Transmission Date: 20120928
  Serious: No
  Sender: FDA-Public Use
  Company Number: None

PATIENT
  Age: 60 Year
  Sex: Male

DRUGS (1)
  1. RIBAVIRIN 200 MG ZYDUS 600MG BID PO [Suspect]
     Indication: HEPATITIS C
     Dosage: 600MG BID PO
     Route: 048
     Dates: start: 20120504

REACTIONS (3)
  - ABDOMINAL DISTENSION [None]
  - WEIGHT INCREASED [None]
  - DYSPNOEA [None]
